FAERS Safety Report 9815561 (Version 1)
Quarter: 2014Q1

REPORT INFORMATION
  Report Type: Report from Study
  Country: GB (occurrence: GB)
  Receive Date: 20140114
  Receipt Date: 20140114
  Transmission Date: 20141002
  Serious: Yes (Hospitalization)
  Sender: FDA-Public Use
  Company Number: GB-JNJFOC-20140103216

PATIENT
  Age: 59 Year
  Sex: Male
  Weight: 103 kg

DRUGS (8)
  1. USTEKINUMAB [Suspect]
     Indication: PSORIASIS
     Route: 058
     Dates: start: 20130501
  2. ASPIRIN [Concomitant]
     Route: 065
     Dates: start: 20100515
  3. DILTIAZEM [Concomitant]
     Route: 065
     Dates: start: 20100515
  4. METOCLOPRAMIDE [Concomitant]
     Route: 065
     Dates: start: 20100827, end: 20130327
  5. SOLPADOL [Concomitant]
     Route: 065
     Dates: start: 20100827, end: 20130327
  6. OMEPRAZOLE [Concomitant]
     Route: 065
     Dates: start: 20090105
  7. BENDROFLUMETHIAZIDE [Concomitant]
     Route: 065
     Dates: start: 20110412
  8. RAMIPRIL [Concomitant]
     Route: 065
     Dates: start: 20110301

REACTIONS (1)
  - Moraxella infection [Recovered/Resolved]
